FAERS Safety Report 6273554-0 (Version None)
Quarter: 2009Q3

REPORT INFORMATION
  Report Type: 
  Country: None (occurrence: None)
  Receive Date: 20090713
  Receipt Date: 20080821
  Transmission Date: 20100115
  Serious: Yes (Hospitalization)
  Sender: FDA-Public Use
  Company Number: 582162

PATIENT
  Age: 78 Year
  Sex: Female

DRUGS (5)
  1. BONIVA [Suspect]
     Indication: DRUG USE FOR UNKNOWN INDICATION
     Dosage: 150 MG 1 PER MONTH ORAL
     Route: 048
  2. NEXIUM [Concomitant]
  3. CHLORDIAZEPOXIDE HCL [Concomitant]
  4. RANITIDINE [Concomitant]
  5. FORTEO [Concomitant]

REACTIONS (4)
  - AMNESIA [None]
  - CONFUSIONAL STATE [None]
  - DIZZINESS [None]
  - HYPERTENSION [None]
